FAERS Safety Report 16979682 (Version 1)
Quarter: 2019Q4

REPORT INFORMATION
  Report Type: Spontaneous
  Country: US (occurrence: US)
  Receive Date: 20191031
  Receipt Date: 20191031
  Transmission Date: 20200122
  Serious: No
  Sender: FDA-Public Use
  Company Number: US-INCYTE CORPORATION-2019IN010465

PATIENT

DRUGS (2)
  1. JAKAFI [Suspect]
     Active Substance: RUXOLITINIB
     Indication: BONE MARROW TRANSPLANT
  2. JAKAFI [Suspect]
     Active Substance: RUXOLITINIB
     Indication: PERIPHERAL T-CELL LYMPHOMA UNSPECIFIED
     Dosage: 10 MILLIGRAM, BID
     Route: 048
     Dates: start: 20180924

REACTIONS (2)
  - Off label use [Unknown]
  - Blood count abnormal [Unknown]

NARRATIVE: CASE EVENT DATE: 20180924
